FAERS Safety Report 8486047-7 (Version None)
Quarter: 2012Q2

REPORT INFORMATION
  Report Type: 
  Country: None (occurrence: None)
  Receive Date: 20120626
  Receipt Date: 20120611
  Transmission Date: 20120825
  Serious: Yes (Hospitalization)
  Sender: FDA-Public Use
  Company Number: 2012060103

PATIENT
  Age: 54 Year
  Sex: Female

DRUGS (1)
  1. ROWASA [Suspect]
     Indication: COLITIS ULCERATIVE
     Dosage: ORAL
     Route: 048
     Dates: start: 20120301, end: 20120401

REACTIONS (6)
  - OBLITERATIVE BRONCHIOLITIS [None]
  - GENERAL PHYSICAL CONDITION ABNORMAL [None]
  - LUNG DISORDER [None]
  - NIGHT SWEATS [None]
  - PRODUCTIVE COUGH [None]
  - COLITIS ULCERATIVE [None]
